FAERS Safety Report 9636075 (Version 2)
Quarter: 2013Q4

REPORT INFORMATION
  Report Type: Spontaneous
  Country: US (occurrence: US)
  Receive Date: 20131021
  Receipt Date: 20131030
  Transmission Date: 20140711
  Serious: Yes (Other)
  Sender: FDA-Public Use
  Company Number: US-GILEAD-2013-0085781

PATIENT
  Sex: Female

DRUGS (4)
  1. LETAIRIS [Suspect]
     Indication: PULMONARY HYPERTENSION
     Dosage: 10 MG, QD
     Route: 048
     Dates: start: 20080816
  2. LETAIRIS [Suspect]
     Indication: SYSTEMIC SCLEROSIS
  3. REVATIO [Concomitant]
  4. AZITHROMYCIN [Concomitant]

REACTIONS (1)
  - Pneumonia [Unknown]
